FAERS Safety Report 7568370-3 (Version None)
Quarter: 2011Q2

REPORT INFORMATION
  Report Type: 
  Country: None (occurrence: None)
  Receive Date: 20110623
  Receipt Date: 20110613
  Transmission Date: 20111010
  Serious: Yes (Hospitalization)
  Sender: FDA-Public Use
  Company Number: B0699897A

PATIENT
  Sex: Male

DRUGS (3)
  1. DEPAS [Concomitant]
     Indication: INSOMNIA
     Route: 048
     Dates: start: 20110124
  2. LAMICTAL [Suspect]
     Indication: PARTIAL SEIZURES
     Route: 048
     Dates: start: 20110125, end: 20110204
  3. DEPAKENE [Concomitant]
     Indication: EPILEPSY
     Dosage: 600MG PER DAY
     Route: 048
     Dates: start: 20110122

REACTIONS (2)
  - PYREXIA [None]
  - RASH [None]
